FAERS Safety Report 21663814 (Version 1)
Quarter: 2022Q4

REPORT INFORMATION
  Report Type: Spontaneous
  Country: US (occurrence: US)
  Receive Date: 20221130
  Receipt Date: 20221130
  Transmission Date: 20230113
  Serious: No
  Sender: FDA-Public Use
  Company Number: UNT-GILEAD-2022-0606277

PATIENT

DRUGS (3)
  1. AMBRISENTAN [Suspect]
     Active Substance: AMBRISENTAN
     Indication: Pulmonary arterial hypertension
     Route: 065
  2. ADCIRCA [Concomitant]
     Active Substance: TADALAFIL
     Indication: Pulmonary hypertension
  3. UPTRAVI [Concomitant]
     Active Substance: SELEXIPAG

REACTIONS (1)
  - Unevaluable event [Unknown]
